FAERS Safety Report 24447013 (Version 3)
Quarter: 2024Q4

REPORT INFORMATION
  Report Type: Report from Study
  Country: DE (occurrence: DE)
  Receive Date: 20241016
  Receipt Date: 20241023
  Transmission Date: 20250115
  Serious: Yes (Death, Life-Threatening, Hospitalization, Other)
  Sender: PFIZER
  Company Number: DE-JNJFOC-20231182422

PATIENT
  Age: 69 Year
  Sex: Male
  Weight: 106.4 kg

DRUGS (11)
  1. BORTEZOMIB [Suspect]
     Active Substance: BORTEZOMIB
     Indication: Plasma cell myeloma
     Dosage: UNK
     Route: 065
  2. DARATUMUMAB [Suspect]
     Active Substance: DARATUMUMAB
     Indication: Plasma cell myeloma
     Dosage: 8 MG/KG (TOTAL DOSE PREPARED: 850 MG; VOLUME ADMINISTERED: 500 ML)
     Route: 042
     Dates: start: 20231114, end: 20231114
  3. BISOPROLOL [Concomitant]
     Active Substance: BISOPROLOL\BISOPROLOL FUMARATE
     Indication: Hypertension
     Dosage: 10 MG, 1X/DAY
     Route: 048
  4. CITALEX [Concomitant]
     Dosage: 20 MG, 1X/DAY
     Route: 048
  5. MUCOCLEAR [SODIUM CHLORIDE] [Concomitant]
     Dosage: 4 ML, 2X/DAY
     Route: 055
     Dates: start: 20231111
  6. ALLOPURINOL [Concomitant]
     Active Substance: ALLOPURINOL
     Indication: Hyperuricaemia
     Dosage: 300 MG, 1X/DAY
     Route: 048
     Dates: start: 20231114
  7. CHOLECALCIFEROL [Concomitant]
     Active Substance: CHOLECALCIFEROL
     Dosage: 1000 IU, 1X/DAY
     Route: 048
     Dates: start: 20121110
  8. AMLODIPINE [Concomitant]
     Active Substance: AMLODIPINE BESYLATE
     Indication: Hypertension
     Dosage: 10 MG, 1X/DAY
     Route: 048
  9. LEVOSIMENDAN [Concomitant]
     Active Substance: LEVOSIMENDAN
     Dosage: UNK
     Route: 065
     Dates: start: 20231115, end: 20231120
  10. SODIUM CHLORIDE [Concomitant]
     Active Substance: SODIUM CHLORIDE
     Dosage: 10 ML, AS NEEDED
     Route: 055
     Dates: start: 20231110
  11. PANTOPRAZOLE [Concomitant]
     Active Substance: PANTOPRAZOLE
     Indication: Gastritis erosive
     Dosage: 40 MG, 1X/DAY
     Route: 048

REACTIONS (6)
  - Staphylococcal sepsis [Fatal]
  - Condition aggravated [Fatal]
  - Pneumocystis jirovecii pneumonia [Unknown]
  - Pneumonia [Unknown]
  - Hyperviscosity syndrome [Unknown]
  - Hypokalaemia [Recovered/Resolved]

NARRATIVE: CASE EVENT DATE: 20231115
